FAERS Safety Report 9214287 (Version 1)
Quarter: 2013Q2

REPORT INFORMATION
  Report Type: Spontaneous
  Country: US (occurrence: US)
  Receive Date: 20130405
  Receipt Date: 20130405
  Transmission Date: 20140414
  Serious: No
  Sender: FDA-Public Use
  Company Number: US-ASTRAZENECA-2013SE19862

PATIENT
  Sex: Female

DRUGS (1)
  1. FASLODEX [Suspect]
     Dosage: 2 SHOTS
     Route: 030
     Dates: start: 201301

REACTIONS (2)
  - Cardiac disorder [Unknown]
  - Feeling abnormal [Unknown]
